FAERS Safety Report 15259777 (Version 1)
Quarter: 2018Q3

REPORT INFORMATION
  Report Type: Spontaneous
  Country: US (occurrence: US)
  Receive Date: 20180809
  Receipt Date: 20180809
  Transmission Date: 20181010
  Serious: No
  Sender: FDA-Public Use
  Company Number: US-MYLANLABS-2018M1058791

PATIENT
  Sex: Female

DRUGS (1)
  1. ESTRADIOL. [Suspect]
     Active Substance: ESTRADIOL
     Indication: ENDOMETRIAL THICKENING
     Dosage: THREE TIMES A DAY
     Route: 067
     Dates: start: 20180727

REACTIONS (1)
  - Off label use [Not Recovered/Not Resolved]
